FAERS Safety Report 13070706 (Version 1)
Quarter: 2016Q4

REPORT INFORMATION
  Report Type: Spontaneous
  Country: US (occurrence: US)
  Receive Date: 20161229
  Receipt Date: 20161229
  Transmission Date: 20170207
  Serious: No
  Sender: FDA-Public Use
  Company Number: US-AUROBINDO-AUR-APL-2016-12063

PATIENT
  Sex: Female
  Weight: 50.79 kg

DRUGS (1)
  1. AMOXICILLIN. [Suspect]
     Active Substance: AMOXICILLIN
     Indication: ACNE
     Dosage: 250 MG, DAILY
     Route: 048

REACTIONS (1)
  - Alopecia [Recovering/Resolving]
